FAERS Safety Report 7495200-0 (Version None)
Quarter: 2011Q2

REPORT INFORMATION
  Report Type: 
  Country: None (occurrence: None)
  Receive Date: 20110520
  Receipt Date: 20110511
  Transmission Date: 20111010
  Serious: Yes (Hospitalization, Other)
  Sender: FDA-Public Use
  Company Number: US-ASTRAZENECA-2011SE28194

PATIENT
  Age: 46 Year
  Sex: Male
  Weight: 94.3 kg

DRUGS (12)
  1. PLAVIX [Concomitant]
  2. XANAX [Concomitant]
  3. NORONTIN [Concomitant]
  4. SEROQUEL [Suspect]
     Route: 048
  5. VALIUM [Concomitant]
  6. LISINOPRIL [Concomitant]
  7. LIPITOR [Concomitant]
  8. SEROQUEL [Suspect]
     Indication: SLEEP DISORDER
     Route: 048
  9. SEROQUEL [Suspect]
     Route: 048
  10. SEROQUEL [Suspect]
     Route: 048
  11. ASPIRIN [Concomitant]
  12. LOPRESSOR [Concomitant]

REACTIONS (5)
  - INSOMNIA [None]
  - SYNCOPE [None]
  - STENT PLACEMENT [None]
  - BLOOD PRESSURE DECREASED [None]
  - MYOCARDIAL INFARCTION [None]
